FAERS Safety Report 10239511 (Version 1)
Quarter: 2014Q2

REPORT INFORMATION
  Report Type: Spontaneous
  Country: BR (occurrence: BR)
  Receive Date: 20140616
  Receipt Date: 20140616
  Transmission Date: 20141212
  Serious: Yes (Hospitalization, Other)
  Sender: FDA-Public Use
  Company Number: BR-PFIZER INC-2014159629

PATIENT
  Age: 74 Year
  Sex: Female
  Weight: 49 kg

DRUGS (8)
  1. LIPITOR [Suspect]
     Dosage: 10 MG DAILY
     Route: 048
  2. ALDACTONE [Suspect]
     Dosage: 25 MG DAILY
     Route: 048
  3. ANCORON [Concomitant]
     Dosage: UNK
  4. ICTUS [Concomitant]
     Dosage: UNK
  5. LASIX [Concomitant]
     Dosage: UNK
  6. PURAN T4 [Concomitant]
     Indication: THYROID DISORDER
     Dosage: 100 MG ( 2 TABLETS OF 50 MG), DAILY
     Dates: start: 2009
  7. RANITIDINE [Concomitant]
     Dosage: UNK
  8. SOMALGIN [Concomitant]
     Dosage: UNK

REACTIONS (4)
  - Urinary tract infection [Unknown]
  - Angiopathy [Unknown]
  - Cardiac disorder [Unknown]
  - Dyspnoea [Unknown]
